FAERS Safety Report 4663219-0 (Version None)
Quarter: 2005Q2

REPORT INFORMATION
  Report Type: 
  Country: None (occurrence: None)
  Receive Date: 20050513
  Receipt Date: 20050502
  Transmission Date: 20051028
  Serious: Yes (Hospitalization)
  Sender: FDA-Public Use
  Company Number: 2005069112

PATIENT
  Age: 39 Year
  Sex: Female

DRUGS (3)
  1. SOLU-MEDROL [Suspect]
     Indication: MULTIPLE SCLEROSIS RELAPSE
     Dosage: 1 GRAM (1 IN 1 D)
     Dates: start: 20050101
  2. DELTASONE [Suspect]
     Indication: MULTIPLE SCLEROSIS RELAPSE
  3. INTERFERON BETA (INTERFERON BETA) [Suspect]
     Indication: MULTIPLE SCLEROSIS
     Dosage: (44 MCG, 3 IN 1 WK), SUBCUTAMNEOUS
     Route: 058
     Dates: start: 20031107, end: 20030421

REACTIONS (8)
  - CONDITION AGGRAVATED [None]
  - DRUG INEFFECTIVE [None]
  - EUPHORIC MOOD [None]
  - INSOMNIA [None]
  - LOGORRHOEA [None]
  - MANIA [None]
  - MULTIPLE DRUG OVERDOSE [None]
  - MULTIPLE SCLEROSIS [None]
